FAERS Safety Report 16328338 (Version 3)
Quarter: 2019Q3

REPORT INFORMATION
  Report Type: Spontaneous
  Country: PT (occurrence: PT)
  Receive Date: 20190518
  Receipt Date: 20190813
  Transmission Date: 20191004
  Serious: Yes (Other)
  Sender: FDA-Public Use
  Company Number: PT-AXELLIA-002462

PATIENT
  Age: 54 Year
  Sex: Male

DRUGS (1)
  1. VORICONAZOLE. [Suspect]
     Active Substance: VORICONAZOLE
     Indication: ASPERGILLUS INFECTION
     Route: 065

REACTIONS (2)
  - Hepatotoxicity [Recovered/Resolved]
  - Drug intolerance [Unknown]
